FAERS Safety Report 8439775-3 (Version None)
Quarter: 2012Q2

REPORT INFORMATION
  Report Type: 
  Country: None (occurrence: None)
  Receive Date: 20120611
  Receipt Date: 20120611
  Transmission Date: 20120825
  Serious: Yes (Life-Threatening, Hospitalization)
  Sender: FDA-Public Use
  Company Number: None

PATIENT
  Age: 69 Year
  Sex: Male
  Weight: 74.8435 kg

DRUGS (1)
  1. PRADAXA [Suspect]
     Indication: CARDIOVERSION
     Dosage: 150MG TWICE/DAY
     Dates: start: 20110201, end: 20120608

REACTIONS (6)
  - PALLOR [None]
  - CHILLS [None]
  - PERIPHERAL COLDNESS [None]
  - HAEMORRHAGE [None]
  - DYSPNOEA [None]
  - BLOOD COUNT ABNORMAL [None]
